FAERS Safety Report 5436042-7 (Version None)
Quarter: 2007Q3

REPORT INFORMATION
  Report Type: 
  Country: None (occurrence: None)
  Receive Date: 20070831
  Receipt Date: 20070821
  Transmission Date: 20080115
  Serious: Yes (Life-Threatening, Hospitalization, Congenital Anomaly)
  Sender: FDA-Public Use
  Company Number: B0485170A

PATIENT
  Age: 2 Day
  Sex: Male

DRUGS (3)
  1. ZIDOVUDINE [Suspect]
     Indication: HIV INFECTION
     Dosage: 2.5MG TWICE PER DAY
     Dates: start: 20061210, end: 20061214
  2. LAMIVUDINE [Suspect]
     Indication: HIV INFECTION
     Dosage: 2.2MG TWICE PER DAY
  3. KALETRA [Suspect]
     Indication: HIV INFECTION
     Dosage: .3ML TWICE PER DAY
     Dates: start: 20061210, end: 20061214

REACTIONS (3)
  - ATRIOVENTRICULAR BLOCK [None]
  - CONGESTIVE CARDIOMYOPATHY [None]
  - PREMATURE BABY [None]
